FAERS Safety Report 6111257-3 (Version None)
Quarter: 2009Q1

REPORT INFORMATION
  Report Type: 
  Country: None (occurrence: None)
  Receive Date: 20090311
  Receipt Date: 20090303
  Transmission Date: 20090719
  Serious: Yes (Other)
  Sender: FDA-Public Use
  Company Number: US-AVENTIS-200911727US

PATIENT
  Age: 65 Year
  Sex: Female

DRUGS (7)
  1. LANTUS [Suspect]
     Dosage: DOSE: 20 - 30
     Route: 058
     Dates: start: 20070201
  2. OPTICLIK (INSULIN INJECTION PEN) [Suspect]
     Dates: start: 20070201
  3. GLUCOPHAGE [Concomitant]
     Dosage: DOSE: UNK
  4. THYROID PREPARATIONS [Concomitant]
     Dosage: DOSE: UNK
  5. CADUET [Concomitant]
     Dosage: DOSE: UNK
  6. LISINOPRIL [Concomitant]
     Dosage: DOSE: UNK
  7. METHOTREXATE [Concomitant]
     Indication: RHEUMATOID ARTHRITIS
     Dosage: DOSE: UNK

REACTIONS (3)
  - BALANCE DISORDER [None]
  - DEAFNESS BILATERAL [None]
  - DIZZINESS [None]
